FAERS Safety Report 10644428 (Version 2)
Quarter: 2015Q1

REPORT INFORMATION
  Report Type: Spontaneous
  Country: US (occurrence: US)
  Receive Date: 20141210
  Receipt Date: 20150102
  Transmission Date: 20150720
  Serious: No
  Sender: FDA-Public Use
  Company Number: US-009507513-1412USA005033

PATIENT
  Sex: Female

DRUGS (1)
  1. COPPERTONE CLEARLYSHEER FOR SUNNY DAYS SPF-30 [Suspect]
     Active Substance: AVOBENZONE\HOMOSALATE\OCTINOXATE\OCTISALATE\OXYBENZONE
     Indication: PRODUCT USED FOR UNKNOWN INDICATION
     Dosage: UNK, UNKNOWN
     Route: 061

REACTIONS (7)
  - Sneezing [Unknown]
  - Chemical burn of skin [Unknown]
  - Unevaluable event [Unknown]
  - Product physical consistency issue [Unknown]
  - Eye irritation [Unknown]
  - Rhinorrhoea [Unknown]
  - Chemical injury [Unknown]
